FAERS Safety Report 8811380 (Version 1)
Quarter: 2012Q4

REPORT INFORMATION
  Report Type: Spontaneous
  Country: DE (occurrence: None)
  Receive Date: 20120924
  Receipt Date: 20120924
  Transmission Date: 20130627
  Serious: Yes (Death, Life-Threatening)
  Sender: FDA-Public Use
  Company Number: GER/GER/12/0025891

PATIENT
  Age: 79 Year
  Sex: Female

DRUGS (8)
  1. METFORMIN (METFORMIN) [Suspect]
     Indication: TYPE II DIABETES MELLITUS
     Route: 048
     Dates: start: 20110604
  2. ASS [Concomitant]
  3. METOPROLOL 95 (METOPROLOL) [Concomitant]
  4. CYTOBION (CYANOCOBALAMIN) [Concomitant]
  5. KEPPRA 500 (LEVETIRACETAM) [Concomitant]
  6. NOVALGIN TROPFEN (METAMIZOLE SODIUM) [Concomitant]
  7. FURO 40 (FUROSEMIDE) [Concomitant]
  8. TRAMAL 100 (TRAMADOL HYDROCHLORIDE) [Concomitant]

REACTIONS (2)
  - Renal failure acute [None]
  - Lactic acidosis [None]
